FAERS Safety Report 10055210 (Version 2)
Quarter: 2017Q1

REPORT INFORMATION
  Report Type: Report from Study
  Country: US (occurrence: US)
  Receive Date: 20140403
  Receipt Date: 20170228
  Transmission Date: 20170428
  Serious: Yes (Other)
  Sender: FDA-Public Use
  Company Number: US-ROCHE-1370321

PATIENT

DRUGS (5)
  1. VINCRISTINE [Suspect]
     Active Substance: VINCRISTINE
     Indication: MANTLE CELL LYMPHOMA
     Route: 042
  2. PREDNISONE. [Suspect]
     Active Substance: PREDNISONE
     Indication: MANTLE CELL LYMPHOMA
     Route: 048
  3. DOXORUBICIN [Suspect]
     Active Substance: DOXORUBICIN
     Indication: MANTLE CELL LYMPHOMA
     Route: 042
  4. RITUXIMAB [Suspect]
     Active Substance: RITUXIMAB
     Indication: MANTLE CELL LYMPHOMA
     Route: 042
  5. CYCLOPHOSPHAMIDE. [Suspect]
     Active Substance: CYCLOPHOSPHAMIDE
     Indication: MANTLE CELL LYMPHOMA
     Route: 042

REACTIONS (22)
  - Non-small cell lung cancer [Unknown]
  - Febrile neutropenia [Unknown]
  - Anaemia [Unknown]
  - Hyperuricaemia [Unknown]
  - Stomatitis [Unknown]
  - Malignant neoplasm of ampulla of Vater [Unknown]
  - Peripheral sensory neuropathy [Unknown]
  - Diarrhoea [Unknown]
  - Neutropenia [Unknown]
  - Metabolic disorder [Unknown]
  - Hyperglycaemia [Unknown]
  - Lymphopenia [Unknown]
  - Skin cancer [Unknown]
  - Infection [Unknown]
  - Hypoglycaemia [Unknown]
  - Hyponatraemia [Unknown]
  - Hypoxia [Unknown]
  - Syncope [Unknown]
  - Fatigue [Unknown]
  - Hypocalcaemia [Unknown]
  - Dyspnoea [Unknown]
  - Bladder cancer [Unknown]
